FAERS Safety Report 7732370-0 (Version None)
Quarter: 2011Q3

REPORT INFORMATION
  Report Type: 
  Country: None (occurrence: None)
  Receive Date: 20110906
  Receipt Date: 20110830
  Transmission Date: 20111222
  Serious: Yes (Other)
  Sender: FDA-Public Use
  Company Number: US-US-EMD SERONO, INC.-7059740

PATIENT
  Sex: Female

DRUGS (2)
  1. REBIF [Suspect]
     Indication: MULTIPLE SCLEROSIS
     Route: 058
     Dates: start: 20030623, end: 20110501
  2. REBIF [Suspect]
     Route: 058
     Dates: start: 20110523

REACTIONS (5)
  - CENTRAL NERVOUS SYSTEM LESION [None]
  - SUICIDAL BEHAVIOUR [None]
  - DEPRESSION [None]
  - INSOMNIA [None]
  - INJECTION SITE RASH [None]
